FAERS Safety Report 12238055 (Version 1)
Quarter: 2016Q2

REPORT INFORMATION
  Report Type: Spontaneous
  Country: US (occurrence: US)
  Receive Date: 20160405
  Receipt Date: 20160405
  Transmission Date: 20160815
  Serious: No
  Sender: FDA-Public Use
  Company Number: US-ACTAVIS-2015-23888

PATIENT
  Age: 55 Year
  Sex: Female
  Weight: 67 kg

DRUGS (4)
  1. NICOTINE POLACRILEX [Suspect]
     Active Substance: NICOTINE
     Indication: NICOTINE DEPENDENCE
     Dosage: 2 MG, 3-4 PIECES PER DAY
     Route: 065
  2. HABITROL [Suspect]
     Active Substance: NICOTINE
     Indication: SMOKING CESSATION THERAPY
     Dosage: 21 MG, DAILY
     Route: 065
  3. NICOTINE POLACRILEX [Suspect]
     Active Substance: NICOTINE
     Indication: SMOKING CESSATION THERAPY
  4. HABITROL [Suspect]
     Active Substance: NICOTINE
     Dosage: 14 MG, DAILY
     Route: 065

REACTIONS (3)
  - Condition aggravated [None]
  - Drug ineffective [Unknown]
  - Nicotine dependence [None]
